FAERS Safety Report 14989207 (Version 2)
Quarter: 2018Q3

REPORT INFORMATION
  Report Type: Spontaneous
  Country: JP (occurrence: JP)
  Receive Date: 20180608
  Receipt Date: 20180712
  Transmission Date: 20181010
  Serious: Yes (Life-Threatening, Hospitalization)
  Sender: FDA-Public Use
  Company Number: JP-009507513-1805JPN000691J

PATIENT
  Age: 61 Year
  Sex: Male
  Weight: 74 kg

DRUGS (7)
  1. NU?LOTAN [Concomitant]
     Active Substance: LOSARTAN POTASSIUM
     Indication: HYPERTENSION
     Dosage: 25 MG, QD
     Route: 048
  2. KEYTRUDA [Suspect]
     Active Substance: PEMBROLIZUMAB
     Indication: NON-SMALL CELL LUNG CANCER STAGE IV
     Dosage: 200 MG, Q3W
     Route: 041
     Dates: start: 20180411, end: 20180502
  3. NIFEDIPINE L [Concomitant]
     Active Substance: NIFEDIPINE
     Indication: HYPERTENSION
     Dosage: 20 MG, QD
     Route: 048
  4. OMEPRAZOLE. [Concomitant]
     Active Substance: OMEPRAZOLE
     Indication: GASTROOESOPHAGEAL REFLUX DISEASE
     Dosage: 10 MG, QD
     Route: 048
  5. ALLOPURINOL. [Concomitant]
     Active Substance: ALLOPURINOL
     Indication: HYPERURICAEMIA
     Dosage: 50 MG, QD
     Route: 048
  6. ACECOL [Concomitant]
     Active Substance: TEMOCAPRIL HYDROCHLORIDE
     Indication: HYPERTENSION
     Dosage: 2 MG, QD
     Route: 048
  7. OLANZAPINE. [Concomitant]
     Active Substance: OLANZAPINE
     Indication: SCHIZOPHRENIA
     Dosage: 2.5 MG, QD
     Route: 048

REACTIONS (2)
  - Myositis [Recovering/Resolving]
  - Atrioventricular block complete [Not Recovered/Not Resolved]

NARRATIVE: CASE EVENT DATE: 20180501
